FAERS Safety Report 9516905 (Version 1)
Quarter: 2013Q3

REPORT INFORMATION
  Report Type: Spontaneous
  Country: US (occurrence: US)
  Receive Date: 20130911
  Receipt Date: 20130911
  Transmission Date: 20140515
  Serious: No
  Sender: FDA-Public Use
  Company Number: US-PFIZER INC-2013258510

PATIENT
  Age: 58 Year
  Sex: Female
  Weight: 53.06 kg

DRUGS (1)
  1. ADVIL COLD AND SINUS LIQUI-GELS [Suspect]
     Indication: SINUSITIS
     Dosage: UNK
     Dates: start: 20130904

REACTIONS (2)
  - Migraine [Unknown]
  - Poor quality sleep [Unknown]
